FAERS Safety Report 6367666-0 (Version None)
Quarter: 2009Q3

REPORT INFORMATION
  Report Type: 
  Country: None (occurrence: None)
  Receive Date: 20090916
  Receipt Date: 20090908
  Transmission Date: 20100115
  Serious: Yes (Other)
  Sender: FDA-Public Use
  Company Number: 09-001460

PATIENT
  Age: 23 Year
  Sex: Female
  Weight: 98.4 kg

DRUGS (5)
  1. LOESTRIN 24 FE [Suspect]
     Indication: CONTRACEPTION
     Dosage: 20/1000UG, QD, ORAL
     Route: 048
     Dates: start: 20090830, end: 20090907
  2. KEPPRA [Concomitant]
  3. LAMICTAL [Concomitant]
  4. ATIVAN [Concomitant]
  5. LEXAPRO [Concomitant]

REACTIONS (3)
  - CONDITION AGGRAVATED [None]
  - CONVULSION [None]
  - METRORRHAGIA [None]
